FAERS Safety Report 26132410 (Version 1)
Quarter: 2025Q4

REPORT INFORMATION
  Report Type: Spontaneous
  Country: CN (occurrence: CN)
  Receive Date: 20251208
  Receipt Date: 20251208
  Transmission Date: 20260117
  Serious: Yes (Life-Threatening, Other)
  Sender: EUROFARMA LABORATORIOS
  Company Number: CN-EUROFARMA-2025-CN-000212

PATIENT
  Age: 64 Year
  Sex: Female

DRUGS (1)
  1. VANCOMYCIN [Suspect]
     Active Substance: VANCOMYCIN
     Indication: Antibiotic therapy
     Dosage: 1 GRAM EVERY 12 HOURS
     Route: 042

REACTIONS (1)
  - Autoimmune haemolytic anaemia [Unknown]
